FAERS Safety Report 12660033 (Version 2)
Quarter: 2016Q4

REPORT INFORMATION
  Report Type: Report from Study
  Country: CA (occurrence: CA)
  Receive Date: 20160817
  Receipt Date: 20161031
  Transmission Date: 20170207
  Serious: Yes (Death)
  Sender: FDA-Public Use
  Company Number: CA-HLSUS-2016-CA-000385

PATIENT
  Age: 75 Year
  Sex: Female

DRUGS (2)
  1. EFFEXOR XR [Concomitant]
     Active Substance: VENLAFAXINE HYDROCHLORIDE
     Dosage: ONCE A DAY
  2. CLOZARIL [Suspect]
     Active Substance: CLOZAPINE
     Dosage: TWICE A DAY
     Route: 048
     Dates: start: 20021204, end: 20160801

REACTIONS (2)
  - Pneumonia [Unknown]
  - Arrhythmia [Fatal]
